FAERS Safety Report 25467457 (Version 1)
Quarter: 2025Q2

REPORT INFORMATION
  Report Type: Spontaneous
  Country: US (occurrence: None)
  Receive Date: 20250621
  Receipt Date: 20250621
  Transmission Date: 20250716
  Serious: No
  Sender: FDA-CTU
  Company Number: None

PATIENT
  Age: 48 Year
  Sex: Male
  Weight: 88.65 kg

DRUGS (13)
  1. XYZAL ALLERGY 24HR [Suspect]
     Active Substance: LEVOCETIRIZINE DIHYDROCHLORIDE
     Indication: Seasonal allergy
     Dosage: OTHER QUANTITY : 1 TABLET(S);?FREQUENCY : DAILY;?
     Route: 048
     Dates: start: 20250420, end: 20250518
  2. VALSARTAN [Concomitant]
     Active Substance: VALSARTAN
  3. HYDROCHLOROTHIAZIDE [Concomitant]
     Active Substance: HYDROCHLOROTHIAZIDE
  4. Atorvartatin [Concomitant]
  5. CALCIUM [Concomitant]
     Active Substance: CALCIUM
  6. Tamaflex [Concomitant]
  7. GLUCOSAMINE [Concomitant]
     Active Substance: GLUCOSAMINE
  8. Chondroitin plus [Concomitant]
  9. Ultimate Omega fish oil [Concomitant]
  10. VITAMIN B12 [Concomitant]
     Active Substance: CYANOCOBALAMIN
  11. VITAMIN D [Concomitant]
     Active Substance: VITAMIN D NOS
  12. MAGNESIUM [Concomitant]
     Active Substance: MAGNESIUM
  13. Beet Root [Concomitant]

REACTIONS (1)
  - Arrhythmia [None]

NARRATIVE: CASE EVENT DATE: 20250421
